FAERS Safety Report 7041153-9 (Version None)
Quarter: 2010Q4

REPORT INFORMATION
  Report Type: 
  Country: None (occurrence: None)
  Receive Date: 20101013
  Receipt Date: 20101007
  Transmission Date: 20110411
  Serious: Yes (Death)
  Sender: FDA-Public Use
  Company Number: FR-SANOFI-AVENTIS-2010SA060361

PATIENT
  Age: 89 Year
  Sex: Female

DRUGS (14)
  1. LOVENOX [Suspect]
     Route: 058
     Dates: start: 20100507, end: 20100517
  2. TOPALGIC [Suspect]
     Route: 048
     Dates: start: 20100507
  3. APRANAX [Suspect]
     Route: 048
     Dates: start: 20100507, end: 20100517
  4. FUROSEMIDE [Suspect]
     Route: 048
     Dates: end: 20100517
  5. BISOPROLOL FUMARATE [Suspect]
     Route: 048
     Dates: end: 20100517
  6. LOXAPAC [Suspect]
     Dosage: 6 TIMES PER DAY
     Route: 048
     Dates: start: 20100507, end: 20100517
  7. FENOFIBRATE [Suspect]
     Route: 048
     Dates: end: 20100517
  8. PERFALGAN [Suspect]
     Route: 042
     Dates: start: 20100507, end: 20100517
  9. ESOMEPRAZOLE [Suspect]
     Route: 048
     Dates: start: 20100507, end: 20100517
  10. PROFENID [Concomitant]
     Route: 065
     Dates: start: 20100507, end: 20100507
  11. ACUPAN [Concomitant]
     Route: 065
     Dates: start: 20100510, end: 20100510
  12. AMOXICILLIN AND CLAVULANATE POTASSIUM [Concomitant]
     Route: 042
     Dates: start: 20100514
  13. FUNGIZONE [Concomitant]
     Route: 002
     Dates: start: 20100514
  14. HUMALOG [Concomitant]
     Route: 058
     Dates: start: 20100514

REACTIONS (1)
  - RENAL FAILURE ACUTE [None]
